FAERS Safety Report 14186153 (Version 1)
Quarter: 2017Q4

REPORT INFORMATION
  Report Type: Spontaneous
  Country: IT (occurrence: IT)
  Receive Date: 20171114
  Receipt Date: 20171114
  Transmission Date: 20180321
  Serious: Yes (Hospitalization, Other)
  Sender: FDA-Public Use
  Company Number: IT-MYLANLABS-2017M1044022

PATIENT
  Age: 44 Year
  Sex: Female

DRUGS (7)
  1. FLUMAZENIL. [Suspect]
     Active Substance: FLUMAZENIL
     Indication: DRUG DETOXIFICATION
     Dosage: 40.5 UG/HOUR FOR 24 HOURS/DAY FOR 7 DAYS
     Route: 058
  2. DIAZEPAM. [Suspect]
     Active Substance: DIAZEPAM
     Indication: PRODUCT USED FOR UNKNOWN INDICATION
     Dosage: 210MG
  3. FLUMAZENIL. [Suspect]
     Active Substance: FLUMAZENIL
     Dosage: SLOWLY TAPERED UP TO 20-40 DAYS AFTER DISCHARGE
  4. CLOBAZAM [Concomitant]
     Active Substance: CLOBAZAM
     Indication: PRODUCT USED FOR UNKNOWN INDICATION
     Dosage: UNK
  5. CLONAZEPAM. [Concomitant]
     Active Substance: CLONAZEPAM
     Indication: PRODUCT USED FOR UNKNOWN INDICATION
     Dosage: 5-6 MG ON THE FIRST DAY
     Route: 048
  6. GABAPENTIN. [Concomitant]
     Active Substance: GABAPENTIN
     Indication: PRODUCT USED FOR UNKNOWN INDICATION
     Dosage: 900 MG, UNK
  7. LEVETIRACETAM. [Concomitant]
     Active Substance: LEVETIRACETAM
     Indication: PRODUCT USED FOR UNKNOWN INDICATION
     Dosage: UNK
     Route: 048

REACTIONS (5)
  - Product use issue [Recovered/Resolved]
  - Intentional product misuse [Recovered/Resolved]
  - Intentional overdose [Recovered/Resolved]
  - Drug withdrawal convulsions [Recovered/Resolved]
  - Drug dependence [Recovered/Resolved]
